FAERS Safety Report 25081732 (Version 3)
Quarter: 2025Q2

REPORT INFORMATION
  Report Type: Spontaneous
  Country: MX (occurrence: MX)
  Receive Date: 20250317
  Receipt Date: 20250514
  Transmission Date: 20250717
  Serious: Yes (Hospitalization, Other)
  Sender: NOVO NORDISK
  Company Number: MX-NOVOPROD-1386006

PATIENT
  Age: 62 Year
  Sex: Female
  Weight: 120 kg

DRUGS (3)
  1. OZEMPIC [Suspect]
     Active Substance: SEMAGLUTIDE
     Route: 058
  2. OZEMPIC [Suspect]
     Active Substance: SEMAGLUTIDE
     Indication: Weight control
     Route: 058
     Dates: start: 202503
  3. OZEMPIC [Suspect]
     Active Substance: SEMAGLUTIDE
     Indication: Glucose tolerance impaired
     Route: 058
     Dates: start: 202312, end: 20250218

REACTIONS (8)
  - Hip surgery [Recovered/Resolved]
  - Fall [Recovered/Resolved]
  - Cartilage injury [Recovered/Resolved]
  - Weight loss poor [Unknown]
  - Influenza [Recovered/Resolved]
  - Constipation [Recovering/Resolving]
  - Product use in unapproved indication [Not Recovered/Not Resolved]
  - Product storage error [Unknown]

NARRATIVE: CASE EVENT DATE: 20231201
